FAERS Safety Report 13601133 (Version 5)
Quarter: 2017Q3

REPORT INFORMATION
  Report Type: Spontaneous
  Country: DE (occurrence: DE)
  Receive Date: 20170601
  Receipt Date: 20170929
  Transmission Date: 20171127
  Serious: Yes (Hospitalization, Other)
  Sender: FDA-Public Use
  Company Number: DE-INCYTE CORPORATION-2017IN004228

PATIENT

DRUGS (4)
  1. JAKAVI [Suspect]
     Active Substance: RUXOLITINIB
     Indication: MYELOFIBROSIS
     Dosage: 10 MG, UNK
     Route: 048
     Dates: start: 20141028
  2. EXJADE [Concomitant]
     Active Substance: DEFERASIROX
     Indication: IRON OVERLOAD
  3. EXJADE [Concomitant]
     Active Substance: DEFERASIROX
     Indication: CHELATION THERAPY
     Dosage: 720 MG, QD
     Route: 048
     Dates: start: 20170209
  4. METOHEXAL [Concomitant]
     Active Substance: METOPROLOL SUCCINATE
     Indication: HYPERTENSION
     Dosage: 47.5 MG, QD
     Route: 048
     Dates: start: 20150502

REACTIONS (15)
  - Neutrophil count increased [Unknown]
  - Blood calcium decreased [Unknown]
  - Blood creatinine increased [Unknown]
  - Cystitis haemorrhagic [Recovered/Resolved]
  - Blood glucose increased [Unknown]
  - Urinary retention [Recovered/Resolved]
  - C-reactive protein increased [Unknown]
  - Glomerular filtration rate decreased [Unknown]
  - Anaemia [Unknown]
  - White blood cell count increased [Unknown]
  - Blood sodium decreased [Unknown]
  - Proteinuria [Unknown]
  - Diarrhoea [Unknown]
  - Blood lactate dehydrogenase increased [Unknown]
  - Lymphocyte count decreased [Unknown]

NARRATIVE: CASE EVENT DATE: 20151230
